FAERS Safety Report 14341691 (Version 1)
Quarter: 2018Q1

REPORT INFORMATION
  Report Type: Spontaneous
  Country: US (occurrence: US)
  Receive Date: 20180102
  Receipt Date: 20180102
  Transmission Date: 20180509
  Serious: No
  Sender: FDA-Public Use
  Company Number: US-TEVA-795124USA

PATIENT
  Sex: Female

DRUGS (1)
  1. KERATASE (MINOXIDIL) [Suspect]
     Active Substance: MINOXIDIL

REACTIONS (2)
  - Alopecia [Not Recovered/Not Resolved]
  - Product use issue [Unknown]
